FAERS Safety Report 8825003 (Version 1)
Quarter: 2012Q4

REPORT INFORMATION
  Report Type: 
  Country: US (occurrence: US)
  Receive Date: 20121004
  Receipt Date: 20121004
  Transmission Date: 20130627
  Serious: Yes (Other)
  Sender: FDA-Public Use
  Company Number: US-ROCHE-1134376

PATIENT
  Sex: Female

DRUGS (4)
  1. RITUXAN [Suspect]
     Indication: CHRONIC LYMPHOCYTIC LEUKAEMIA
     Route: 065
  2. FLUDARA [Concomitant]
  3. CYTOXAN [Concomitant]
     Route: 065
     Dates: start: 19990408
  4. VIOXX [Concomitant]

REACTIONS (11)
  - Lymphadenopathy [Unknown]
  - Oedema peripheral [Unknown]
  - Flank pain [Unknown]
  - Fatigue [Unknown]
  - Dry skin [Unknown]
  - Nocturia [Unknown]
  - Neck pain [Unknown]
  - Weight increased [Unknown]
  - Asthenia [Unknown]
  - Diarrhoea [Unknown]
  - Vision blurred [Unknown]
